FAERS Safety Report 5665173-1 (Version None)
Quarter: 2008Q1

REPORT INFORMATION
  Report Type: 
  Country: None (occurrence: None)
  Receive Date: 20080314
  Receipt Date: 20041112
  Transmission Date: 20080703
  Serious: No
  Sender: FDA-Public Use
  Company Number: US-ABBOTT-04P-163-0280669-00

PATIENT
  Sex: Female
  Weight: 83.99 kg

DRUGS (10)
  1. HUMIRA [Suspect]
     Indication: RHEUMATOID ARTHRITIS
     Route: 058
     Dates: start: 20041013, end: 20041219
  2. SERTRALINE HYDROCHLORIDE [Concomitant]
     Indication: ANXIETY
     Route: 048
  3. SERTRALINE HYDROCHLORIDE [Concomitant]
     Indication: DEPRESSION
  4. METHOTREXATE [Concomitant]
     Indication: RHEUMATOID ARTHRITIS
     Route: 048
  5. FOLIC ACID [Concomitant]
     Indication: RHEUMATOID ARTHRITIS
     Route: 048
  6. LEUCOVORIN CALCIUM [Concomitant]
     Indication: RHEUMATOID ARTHRITIS
     Route: 048
  7. LANSOPRAZOLE [Concomitant]
     Indication: GASTROOESOPHAGEAL REFLUX DISEASE
     Route: 048
  8. ZELNORMIN [Concomitant]
     Indication: IRRITABLE BOWEL SYNDROME
     Route: 048
  9. DOXEPIN HCL [Concomitant]
     Indication: INSOMNIA
     Route: 048
  10. VITAMIN CAP [Concomitant]
     Route: 048

REACTIONS (6)
  - EAR INFECTION [None]
  - EAR PRURITUS [None]
  - HEADACHE [None]
  - NAUSEA [None]
  - OTORRHOEA [None]
  - UNEVALUABLE EVENT [None]
